FAERS Safety Report 5218375-2 (Version None)
Quarter: 2007Q1

REPORT INFORMATION
  Report Type: 
  Country: None (occurrence: None)
  Receive Date: 20061201
  Receipt Date: 20060217
  Transmission Date: 20070707
  Serious: Yes (Life-Threatening)
  Sender: FDA-Public Use
  Company Number: PHEH2006US01143

PATIENT
  Age: 73 Year
  Sex: Male

DRUGS (5)
  1. LAMISIL [Suspect]
     Indication: TINEA PEDIS
     Dosage: 250 MG, QD, ORAL
     Route: 048
     Dates: start: 20051020, end: 20051120
  2. DOXAZOSIN (DOXAZOSIN) [Concomitant]
  3. ENALAPRIL MALEATE [Concomitant]
  4. METFORMIN HCL [Concomitant]
  5. ALLOPURINOL [Concomitant]

REACTIONS (6)
  - ERYTHEMA [None]
  - OEDEMA PERIPHERAL [None]
  - PAIN [None]
  - SKIN BURNING SENSATION [None]
  - SKIN OEDEMA [None]
  - TOXIC EPIDERMAL NECROLYSIS [None]
